FAERS Safety Report 7024878-0 (Version None)
Quarter: 2010Q4

REPORT INFORMATION
  Report Type: 
  Country: None (occurrence: None)
  Receive Date: 20101001
  Receipt Date: 20100927
  Transmission Date: 20110411
  Serious: Yes (Death, Hospitalization, Disabling, Other)
  Sender: FDA-Public Use
  Company Number: US-MERCK-0703USA04385

PATIENT
  Age: 74 Year
  Sex: Male
  Weight: 98 kg

DRUGS (4)
  1. FOSAMAX [Suspect]
     Indication: OSTEOPENIA
     Route: 048
     Dates: start: 20010214, end: 20050315
  2. FOSAMAX [Suspect]
     Route: 048
     Dates: end: 20060601
  3. FOSAMAX [Suspect]
     Indication: OSTEOPOROSIS
     Route: 048
     Dates: start: 20010214, end: 20050315
  4. FOSAMAX [Suspect]
     Route: 048
     Dates: end: 20060601

REACTIONS (37)
  - ACUTE RESPIRATORY DISTRESS SYNDROME [None]
  - ADVERSE DRUG REACTION [None]
  - ANXIETY [None]
  - ARTERIOSCLEROSIS CORONARY ARTERY [None]
  - ARTHRALGIA [None]
  - ATRIAL FIBRILLATION [None]
  - BONE DENSITY DECREASED [None]
  - CARDIAC FAILURE CONGESTIVE [None]
  - CHRONIC OBSTRUCTIVE PULMONARY DISEASE [None]
  - COMPRESSION FRACTURE [None]
  - CORONARY ARTERY DISEASE [None]
  - DEVICE OCCLUSION [None]
  - DYSPNOEA [None]
  - EATING DISORDER [None]
  - EPISTAXIS [None]
  - EXOSTOSIS [None]
  - FISTULA DISCHARGE [None]
  - FLUID RETENTION [None]
  - HYPERGLYCAEMIA [None]
  - IMPAIRED HEALING [None]
  - INTERNATIONAL NORMALISED RATIO DECREASED [None]
  - INTERSTITIAL LUNG DISEASE [None]
  - JOINT SPRAIN [None]
  - LUNG NEOPLASM [None]
  - LUNG SQUAMOUS CELL CARCINOMA STAGE UNSPECIFIED [None]
  - MASTICATION DISORDER [None]
  - OEDEMA PERIPHERAL [None]
  - ORAL INFECTION [None]
  - ORAL TORUS [None]
  - OSTEOMYELITIS [None]
  - OSTEONECROSIS OF JAW [None]
  - PNEUMONIA [None]
  - PULMONARY AIR LEAKAGE [None]
  - RESPIRATORY FAILURE [None]
  - SPINAL COLUMN STENOSIS [None]
  - TOOTH LOSS [None]
  - VENOUS INSUFFICIENCY [None]
